FAERS Safety Report 9463618 (Version 1)
Quarter: 2013Q3

REPORT INFORMATION
  Report Type: Report from Study
  Country: IN (occurrence: IN)
  Receive Date: 20130819
  Receipt Date: 20130819
  Transmission Date: 20140515
  Serious: Yes (Hospitalization)
  Sender: FDA-Public Use
  Company Number: PHHY2013IN085898

PATIENT
  Age: 82 Year
  Sex: Male

DRUGS (12)
  1. DIOVAN [Suspect]
     Indication: HYPERTENSION
     Dosage: 160 MG, DAILY
     Route: 048
     Dates: start: 2008
  2. SELOKEN L [Concomitant]
     Indication: HYPERTENSION
     Dosage: 150 MG, (ONCE A DAY)/ DAILY
     Route: 048
  3. LEVEMIR [Concomitant]
     Indication: DIABETES MELLITUS
     Dosage: 25 U, QD
  4. ECOSPRIN [Concomitant]
     Indication: CARDIAC DISORDER
     Dosage: 150 MG, DAILY
     Route: 048
  5. ENACE [Concomitant]
     Indication: BLOOD PRESSURE ABNORMAL
     Dosage: 2 DF,(10 MG) DAILY
  6. ENACE [Concomitant]
     Dosage: 2 DF,(6.25 MG) DAILY
  7. DIAMICRON [Concomitant]
     Indication: DIABETES MELLITUS
     Dosage: 60 MG, DAILY
  8. JANUVIA [Concomitant]
     Dosage: 50 MG, UNK
  9. JANUVIA [Concomitant]
     Dosage: 100 MG, UNK
  10. SIMVASTATIN [Concomitant]
     Indication: BLOOD VISCOSITY INCREASED
     Dosage: 40 MG, UNK
  11. SURBEX [Concomitant]
     Indication: MALAISE
     Dosage: UNK UKN, UNK
  12. VALIUM [Concomitant]
     Indication: SLEEP DISORDER
     Dosage: 5 MG, UNK

REACTIONS (2)
  - Urinary tract infection [Not Recovered/Not Resolved]
  - Hydrocele [Recovered/Resolved]
